FAERS Safety Report 5712253-8 (Version None)
Quarter: 2008Q2

REPORT INFORMATION
  Report Type: 
  Country: None (occurrence: None)
  Receive Date: 20080417
  Receipt Date: 20080407
  Transmission Date: 20081010
  Serious: Yes (Other)
  Sender: FDA-Public Use
  Company Number: 230007J07USA

PATIENT
  Age: 49 Year
  Sex: Female
  Weight: 68.0396 kg

DRUGS (3)
  1. REBIF [Suspect]
     Indication: MULTIPLE SCLEROSIS
     Dosage: 44 MCG, 3 IN 1 WEEKS, SUBCUTANEOUS
     Route: 058
     Dates: start: 20050516
  2. ANTIHYPERTENSIVES (ANTIHYPERTENSIVES) [Concomitant]
  3. ANTICHOLESTEROL MEDICATION (OTHER CHOLESTEROL AND TRIGLYCERIDE REDUCER [Concomitant]

REACTIONS (3)
  - DIABETES MELLITUS [None]
  - MULTIPLE SCLEROSIS [None]
  - OPTIC NEURITIS [None]
